FAERS Safety Report 9322825 (Version 3)
Quarter: 2014Q2

REPORT INFORMATION
  Report Type: Spontaneous
  Country: US (occurrence: US)
  Receive Date: 20130601
  Receipt Date: 20140425
  Transmission Date: 20141212
  Serious: Yes (Hospitalization, Disabling, Other)
  Sender: FDA-Public Use
  Company Number: US-ASTRAZENECA-2013SE38646

PATIENT
  Age: 600 Month
  Sex: Female
  Weight: 68 kg

DRUGS (16)
  1. NEXIUM [Suspect]
     Indication: DYSPEPSIA
     Route: 048
     Dates: start: 20050101
  2. NEXIUM [Suspect]
     Indication: DYSPEPSIA
     Route: 048
     Dates: start: 20070518
  3. PONDIMAN FENFEN [Suspect]
     Route: 065
  4. TOPAMAX [Concomitant]
     Indication: MIGRAINE
  5. TOPAMAX [Concomitant]
     Indication: MIGRAINE
     Dates: start: 20070518
  6. TOPAMAX [Concomitant]
     Indication: MIGRAINE
     Dates: start: 20080520
  7. TOPAMAX [Concomitant]
     Indication: MIGRAINE
     Dates: start: 20080602
  8. PROZAC [Concomitant]
     Indication: DEPRESSION
  9. VALIUM [Concomitant]
     Indication: ANXIETY
     Dates: start: 20100320
  10. ABILIFY [Concomitant]
     Indication: DEPRESSION
  11. PROTONIX [Concomitant]
     Indication: DYSPEPSIA
  12. SYNTHROID [Concomitant]
     Indication: THYROID DISORDER
  13. ZOMIG [Concomitant]
     Indication: MIGRAINE
  14. ZOMIG [Concomitant]
     Indication: MIGRAINE
     Dates: start: 20070724
  15. MAXALT [Concomitant]
     Indication: MIGRAINE
  16. ALPRAZOLAM [Concomitant]
     Dates: start: 20100320

REACTIONS (9)
  - Foot fracture [Unknown]
  - Fall [Unknown]
  - Migraine [Unknown]
  - Depression [Unknown]
  - Osteoporosis [Unknown]
  - Bone disorder [Unknown]
  - Mitral valve prolapse [Unknown]
  - Avulsion fracture [Unknown]
  - Tibia fracture [Unknown]
